FAERS Safety Report 9007362 (Version 2)
Quarter: 2013Q1

REPORT INFORMATION
  Report Type: Spontaneous
  Country: US (occurrence: US)
  Receive Date: 20130110
  Receipt Date: 20130117
  Transmission Date: 20140127
  Serious: Yes (Hospitalization, Other)
  Sender: FDA-Public Use
  Company Number: US-BAXTER-2013BAX000960

PATIENT
  Age: 36 None
  Sex: Female

DRUGS (7)
  1. DIANEAL LOW CALCIUM [Suspect]
     Indication: PERITONEAL DIALYSIS
     Route: 033
     Dates: start: 20101101
  2. DIANEAL LOW CALCIUM [Suspect]
     Indication: PERITONEAL DIALYSIS
     Route: 033
     Dates: start: 20101101
  3. DIANEAL LOW CALCIUM (ULTRABAG) [Suspect]
     Indication: PERITONEAL DIALYSIS
     Route: 033
     Dates: start: 20101101
  4. DIANEAL LOW CALCIUM (ULTRABAG) [Suspect]
     Indication: PERITONEAL DIALYSIS
     Route: 033
     Dates: start: 20101101
  5. COUMADIN [Suspect]
     Indication: COAGULOPATHY
     Route: 048
  6. COUMADIN [Suspect]
     Route: 048
  7. COUMADIN [Suspect]
     Route: 048

REACTIONS (3)
  - Compartment syndrome [Recovering/Resolving]
  - Haemorrhage [Recovering/Resolving]
  - Postoperative wound complication [Recovering/Resolving]
